FAERS Safety Report 7091432-4 (Version None)
Quarter: 2010Q4

REPORT INFORMATION
  Report Type: 
  Country: None (occurrence: None)
  Receive Date: 20101109
  Receipt Date: 20101101
  Transmission Date: 20110411
  Serious: Yes (Hospitalization)
  Sender: FDA-Public Use
  Company Number: US-ABBOTT-10P-163-0682603-00

PATIENT
  Sex: Female
  Weight: 80.358 kg

DRUGS (21)
  1. NIASPAN [Suspect]
     Indication: LOW DENSITY LIPOPROTEIN INCREASED
     Dates: start: 20080101, end: 20100101
  2. OMEPRAZOLE [Concomitant]
     Indication: PRODUCT USED FOR UNKNOWN INDICATION
  3. M.V.I. [Concomitant]
     Indication: PRODUCT USED FOR UNKNOWN INDICATION
  4. BACLOFEN [Concomitant]
     Indication: MUSCLE SPASMS
  5. BACLOFEN [Concomitant]
     Indication: PROPHYLAXIS
  6. PROVIGIL [Concomitant]
     Indication: SOMNOLENCE
  7. VIT C [Concomitant]
     Indication: PRODUCT USED FOR UNKNOWN INDICATION
  8. REGLAN [Concomitant]
     Indication: OESOPHAGEAL DISORDER
  9. FISH OIL [Concomitant]
     Indication: PRODUCT USED FOR UNKNOWN INDICATION
  10. ACETYLCYSTEINE [Concomitant]
     Indication: BLOOD HOMOCYSTEINE ABNORMAL
  11. ACIDOPHILUS [Concomitant]
     Indication: DYSPEPSIA
  12. CAL +D [Concomitant]
     Indication: PRODUCT USED FOR UNKNOWN INDICATION
     Dosage: 1000/400 DAILY
  13. VIT D [Concomitant]
     Indication: PRODUCT USED FOR UNKNOWN INDICATION
  14. WARFARIN [Concomitant]
     Indication: THROMBOSIS
  15. DUCOLAX SODIUM [Concomitant]
     Indication: PRODUCT USED FOR UNKNOWN INDICATION
  16. FIBERCON [Concomitant]
     Indication: PRODUCT USED FOR UNKNOWN INDICATION
  17. DIOVAN [Concomitant]
     Indication: BLOOD PRESSURE
  18. CRESTOR [Concomitant]
     Indication: PRODUCT USED FOR UNKNOWN INDICATION
  19. DILANTIN [Concomitant]
     Indication: CEREBRAL DISORDER
  20. B100 [Concomitant]
     Indication: PRODUCT USED FOR UNKNOWN INDICATION
  21. LACTULOSE [Concomitant]
     Indication: CONSTIPATION

REACTIONS (5)
  - ADVERSE DRUG REACTION [None]
  - FALL [None]
  - PRURITUS [None]
  - SUBDURAL HAEMATOMA [None]
  - THROMBOSIS [None]
